FAERS Safety Report 17367500 (Version 1)
Quarter: 2020Q1

REPORT INFORMATION
  Report Type: Spontaneous
  Country: US (occurrence: US)
  Receive Date: 20200203
  Receipt Date: 20200203
  Transmission Date: 20200409
  Serious: Yes (Hospitalization)
  Sender: FDA-Public Use
  Company Number: None

PATIENT
  Sex: Male

DRUGS (3)
  1. ZYTIGA [Concomitant]
     Active Substance: ABIRATERONE ACETATE
     Dates: start: 20200201
  2. ZYTIGA [Suspect]
     Active Substance: ABIRATERONE ACETATE
  3. PREDNISONE TAB 5MG [Concomitant]
     Active Substance: PREDNISONE
     Dates: start: 20200201

REACTIONS (1)
  - Hospitalisation [None]
